FAERS Safety Report 5467823-1 (Version None)
Quarter: 2007Q3

REPORT INFORMATION
  Report Type: 
  Country: None (occurrence: None)
  Receive Date: 20070924
  Receipt Date: 20070919
  Transmission Date: 20080115
  Serious: Yes (Life-Threatening, Hospitalization)
  Sender: FDA-Public Use
  Company Number: 2007SP018896

PATIENT
  Sex: Male

DRUGS (1)
  1. TEMODAL [Suspect]
     Indication: GLIOBLASTOMA
     Dates: start: 20070401, end: 20070801

REACTIONS (3)
  - AGGRESSION [None]
  - DEPRESSION [None]
  - THROMBOCYTOPENIA [None]
